FAERS Safety Report 6254964-4 (Version None)
Quarter: 2009Q2

REPORT INFORMATION
  Report Type: 
  Country: None (occurrence: None)
  Receive Date: 20090630
  Receipt Date: 20090618
  Transmission Date: 20091009
  Serious: Yes (Other)
  Sender: FDA-Public Use
  Company Number: 2009AP002471

PATIENT
  Sex: Female

DRUGS (2)
  1. ALENDRONATE SODIUM [Suspect]
     Dates: start: 20060201
  2. CALCIUM (CALCIUM) [Concomitant]

REACTIONS (1)
  - BLINDNESS [None]
